FAERS Safety Report 9311406 (Version 1)
Quarter: 2013Q2

REPORT INFORMATION
  Report Type: Spontaneous
  Country: JP (occurrence: JP)
  Receive Date: 20130528
  Receipt Date: 20130528
  Transmission Date: 20140414
  Serious: Yes (Hospitalization, Other)
  Sender: FDA-Public Use
  Company Number: JP-UCBSA-085234

PATIENT
  Age: 68 Year
  Sex: Male

DRUGS (5)
  1. NEUPRO [Suspect]
     Indication: PARKINSONISM
     Dosage: DAILY DOSE: 4.5 MG
     Route: 061
     Dates: start: 20130410, end: 20130412
  2. ISOTONIC SODIUM CHLORIDE SOLUTION [Concomitant]
     Dosage: INTRAVENOUS DRIP INFUSION, ISOTONIC SOLUTION
     Route: 041
     Dates: end: 20130409
  3. ISOTONIC SODIUM CHLORIDE SOLUTION [Concomitant]
     Dosage: 100 ML, ISOTONIC SOLUTION
     Route: 041
     Dates: start: 20130413
  4. LEVODOPA [Concomitant]
     Dosage: 1 AMP(DAILY DOSE)
     Dates: end: 20130409
  5. LEVODOPA [Concomitant]
     Dosage: 1 AMP (DAILY DOSE)
     Dates: start: 20130413

REACTIONS (2)
  - Somnolence [Unknown]
  - Dysphagia [Unknown]
